FAERS Safety Report 11865166 (Version 2)
Quarter: 2016Q1

REPORT INFORMATION
  Report Type: Spontaneous
  Country: US (occurrence: US)
  Receive Date: 20151223
  Receipt Date: 20160111
  Transmission Date: 20160526
  Serious: Yes (Life-Threatening, Other)
  Sender: FDA-Public Use
  Company Number: US-PURDUE-USA-2015-0128112

PATIENT
  Sex: Male

DRUGS (4)
  1. OXYCONTIN [Suspect]
     Active Substance: OXYCODONE HYDROCHLORIDE
     Dosage: 2X 60 MG, DAILY
     Route: 048
  2. OXYCONTIN [Suspect]
     Active Substance: OXYCODONE HYDROCHLORIDE
     Indication: PAIN
     Dosage: 60 MG, BID
     Route: 048
     Dates: start: 201512
  3. OXYCONTIN [Suspect]
     Active Substance: OXYCODONE HYDROCHLORIDE
     Dosage: 160 MG, TID
     Route: 048
  4. OXYCONTIN [Suspect]
     Active Substance: OXYCODONE HYDROCHLORIDE
     Dosage: 100 MG, TID
     Route: 048

REACTIONS (8)
  - Depression [Not Recovered/Not Resolved]
  - Pain [Unknown]
  - Intentional product use issue [Unknown]
  - Respiratory arrest [Unknown]
  - Myocardial infarction [Unknown]
  - Drug ineffective [Not Recovered/Not Resolved]
  - Drug withdrawal syndrome [Unknown]
  - Blood pressure increased [Not Recovered/Not Resolved]
